FAERS Safety Report 14827768 (Version 1)
Quarter: 2018Q2

REPORT INFORMATION
  Report Type: Report from Study
  Country: BR (occurrence: BR)
  Receive Date: 20180430
  Receipt Date: 20180430
  Transmission Date: 20180711
  Serious: Yes (Other)
  Sender: FDA-Public Use
  Company Number: BR-JNJFOC-20180435403

PATIENT
  Sex: Male

DRUGS (3)
  1. MIOCARDIL [Concomitant]
     Route: 065
  2. HIDROMED [Concomitant]
     Active Substance: HYDROCHLOROTHIAZIDE
     Route: 065
  3. STELARA [Suspect]
     Active Substance: USTEKINUMAB
     Indication: PSORIASIS
     Route: 058
     Dates: start: 20141128

REACTIONS (2)
  - Anaemia [Unknown]
  - Cerebrovascular accident [Recovered/Resolved]

NARRATIVE: CASE EVENT DATE: 2018
